FAERS Safety Report 10975263 (Version 3)
Quarter: 2015Q2

REPORT INFORMATION
  Report Type: Spontaneous
  Country: US (occurrence: US)
  Receive Date: 20150401
  Receipt Date: 20150528
  Transmission Date: 20150821
  Serious: Yes (Life-Threatening, Hospitalization, Other)
  Sender: FDA-Public Use
  Company Number: US-ASTRAZENECA-2015SE29510

PATIENT
  Age: 69 Year
  Sex: Male
  Weight: 72.6 kg

DRUGS (5)
  1. SPIRIVA [Concomitant]
     Active Substance: TIOTROPIUM BROMIDE MONOHYDRATE
     Indication: RESPIRATORY DISORDER
     Route: 048
  2. SYMBICORT [Suspect]
     Active Substance: BUDESONIDE\FORMOTEROL FUMARATE DIHYDRATE
     Indication: EMPHYSEMA
     Dosage: 160 4.5MCG 2 PUFFS TWICE A DAY
     Route: 055
     Dates: start: 20150312
  3. PAIN KILLERS [Concomitant]
     Active Substance: UNSPECIFIED INGREDIENT
     Indication: PAIN
  4. VENTOLIN [Concomitant]
     Active Substance: ALBUTEROL SULFATE
     Indication: RESPIRATORY DISORDER
     Route: 055
  5. SYMBICORT [Suspect]
     Active Substance: BUDESONIDE\FORMOTEROL FUMARATE DIHYDRATE
     Indication: EMPHYSEMA
     Dosage: 160/ 4.5 MCG, 2 PUFFS  TWO TIMES A DAY
     Route: 055
     Dates: start: 2010

REACTIONS (15)
  - Hypoacusis [Unknown]
  - Stress [Not Recovered/Not Resolved]
  - Incorrect dose administered by device [Unknown]
  - Rib fracture [Unknown]
  - Apparent death [Unknown]
  - Malaise [Unknown]
  - Myocardial infarction [Unknown]
  - Coma [Unknown]
  - Internal haemorrhage [Unknown]
  - Bladder cancer [Unknown]
  - Road traffic accident [Unknown]
  - Viral infection [Unknown]
  - Anxiety [Not Recovered/Not Resolved]
  - Fall [Unknown]
  - Depression [Not Recovered/Not Resolved]

NARRATIVE: CASE EVENT DATE: 2013
